FAERS Safety Report 15357791 (Version 1)
Quarter: 2018Q3

REPORT INFORMATION
  Report Type: Spontaneous
  Country: US (occurrence: US)
  Receive Date: 20180906
  Receipt Date: 20180906
  Transmission Date: 20181010
  Serious: No
  Sender: FDA-Public Use
  Company Number: US-009507513-1808USA003629

PATIENT
  Age: 71 Year
  Sex: Male

DRUGS (2)
  1. SINEMET [Suspect]
     Active Substance: CARBIDOPA\LEVODOPA
     Indication: PARKINSON^S DISEASE
     Dosage: CARBIDOPA 25 MG/LEVODOPA 100 MG 5 TABLETS DAILY
     Route: 048
  2. ROPINIROLE. [Suspect]
     Active Substance: ROPINIROLE
     Indication: PARKINSON^S DISEASE
     Dosage: ROPINIROLE 5 MG 3 TIMES DAILY.

REACTIONS (2)
  - Dopamine dysregulation syndrome [Unknown]
  - Inappropriate schedule of drug administration [Unknown]
